FAERS Safety Report 24795602 (Version 2)
Quarter: 2025Q1

REPORT INFORMATION
  Report Type: Spontaneous
  Country: US (occurrence: US)
  Receive Date: 20250101
  Receipt Date: 20250107
  Transmission Date: 20250408
  Serious: Yes (Hospitalization, Other)
  Sender: ORGANON
  Company Number: US-ORGANON-O2412USA002794

PATIENT
  Age: 68 Year
  Sex: Male

DRUGS (2)
  1. COZAAR [Suspect]
     Active Substance: LOSARTAN POTASSIUM
  2. MESALAMINE [Suspect]
     Active Substance: MESALAMINE

REACTIONS (1)
  - Pancreatitis necrotising [Recovered/Resolved]
